FAERS Safety Report 9664155 (Version 2)
Quarter: 2013Q4

REPORT INFORMATION
  Report Type: Report from Study
  Country: ES (occurrence: ES)
  Receive Date: 20131101
  Receipt Date: 20131101
  Transmission Date: 20140711
  Serious: Yes (Death, Life-Threatening, Hospitalization)
  Sender: FDA-Public Use
  Company Number: ES-SA-MOZO-1000887

PATIENT
  Age: 52 Year
  Sex: Male
  Weight: 71 kg

DRUGS (6)
  1. PLERIXAFOR [Suspect]
     Indication: ACUTE MYELOID LEUKAEMIA
     Dosage: 14800 MCG, UNK (INDUCTION PHASE)
     Route: 042
     Dates: start: 20130706, end: 20130709
  2. FLUDARABINE PHOSPHATE [Suspect]
     Indication: ACUTE MYELOID LEUKAEMIA
     Dosage: 54 MG, UNK (INDUCTION PHASE)
     Route: 042
     Dates: start: 20130706, end: 20130709
  3. LENOGRASTIM [Suspect]
     Indication: ACUTE MYELOID LEUKAEMIA
     Dosage: 263 MCG, UNK (INDUCTION PHASE)
     Route: 058
     Dates: start: 20130705, end: 20130705
  4. IDARUBICIN [Suspect]
     Indication: ACUTE MYELOID LEUKAEMIA
     Dosage: 18 MG, UNK (INDUCTION PHASE)
     Route: 042
     Dates: start: 20130706, end: 20130708
  5. CYTARABINE [Suspect]
     Indication: ACUTE MYELOID LEUKAEMIA
     Dosage: 3600 MG, UNK (INDUCTION PHASE)
     Route: 042
     Dates: start: 20130706, end: 20130709
  6. FILGRASTIM [Suspect]
     Indication: ACUTE MYELOID LEUKAEMIA
     Dosage: 370 MCG, UNK (INDUCTION PHASE)
     Route: 058
     Dates: start: 20130706, end: 20130710

REACTIONS (3)
  - Respiratory failure [Fatal]
  - Pneumonia bacterial [Fatal]
  - Septic shock [Not Recovered/Not Resolved]
